FAERS Safety Report 19097849 (Version 9)
Quarter: 2023Q2

REPORT INFORMATION
  Report Type: Report from Study
  Country: KR (occurrence: None)
  Receive Date: 20210406
  Receipt Date: 20230617
  Transmission Date: 20230721
  Serious: Yes (Life-Threatening, Hospitalization)
  Sender: FDA-Public Use
  Company Number: KR-ROCHE-2800443

PATIENT
  Age: 58 Year
  Sex: Male
  Weight: 65.5 kg

DRUGS (12)
  1. TIRAGOLUMAB [Suspect]
     Active Substance: TIRAGOLUMAB
     Indication: Small cell lung cancer extensive stage
     Dosage: DATE OF MOST RECENT DOSE ADMINISTERED OF BLINDED MTIG 7192A PRIOR TO AE/SAE ONSET: 23/MAR/2021 ?DAY
     Route: 042
     Dates: start: 20210105
  2. ATEZOLIZUMAB [Suspect]
     Active Substance: ATEZOLIZUMAB
     Indication: Small cell lung cancer extensive stage
     Dosage: DATE OF MOST RECENT DOSE ADMINISTERED OF ATEZOLIZUMAB PRIOR TO AE/SAE ONSET: 23/MAR/2021 ?DAY 1 OF E
     Route: 041
     Dates: start: 20210105
  3. CARBOPLATIN [Suspect]
     Active Substance: CARBOPLATIN
     Indication: Small cell lung cancer extensive stage
     Dosage: DATE OF MOST RECENT DOSE (670 MG) ADMINISTERED OF CARBOPLATIN PRIOR TO AE/SAE ONSET: 23/MAR/2021 ?DA
     Route: 042
     Dates: start: 20210105
  4. ETOPOSIDE [Suspect]
     Active Substance: ETOPOSIDE
     Indication: Small cell lung cancer extensive stage
     Dosage: DATE OF MOST RECENT DOSE (180 MG) ADMINISTERED OF ETOPOSIDE PRIOR TO AE/SAE ONSET: 25/MAR/2021 ?DAYS
     Route: 042
     Dates: start: 20210105
  5. TRAMADOL HCL [Concomitant]
     Active Substance: TRAMADOL HYDROCHLORIDE
     Indication: Arthralgia
     Route: 048
     Dates: start: 2010
  6. HANMI TAMS [Concomitant]
     Indication: Benign prostatic hyperplasia
     Route: 048
     Dates: start: 2018, end: 20210407
  7. AVODART [Concomitant]
     Active Substance: DUTASTERIDE
     Indication: Benign prostatic hyperplasia
     Route: 048
     Dates: start: 2018, end: 20210407
  8. VESICARE [Concomitant]
     Active Substance: SOLIFENACIN SUCCINATE
     Indication: Benign prostatic hyperplasia
     Route: 048
     Dates: start: 2018, end: 20210407
  9. LEVOPRIDE (SOUTH KOREA) [Concomitant]
     Route: 048
     Dates: start: 20210126, end: 20210315
  10. LEVOPRIDE (SOUTH KOREA) [Concomitant]
     Route: 048
     Dates: start: 20210316
  11. DEXAMETHASONE [Concomitant]
     Active Substance: DEXAMETHASONE
     Route: 042
     Dates: start: 20210323, end: 20210323
  12. ALOXI [Concomitant]
     Active Substance: PALONOSETRON HYDROCHLORIDE
     Route: 042
     Dates: start: 20210323, end: 20210323

REACTIONS (1)
  - Acute myocardial infarction [Recovered/Resolved]

NARRATIVE: CASE EVENT DATE: 20210328
